FAERS Safety Report 11905510 (Version 1)
Quarter: 2016Q1

REPORT INFORMATION
  Report Type: Spontaneous
  Country: FR (occurrence: FR)
  Receive Date: 20160109
  Receipt Date: 20160109
  Transmission Date: 20160526
  Serious: Yes (Hospitalization)
  Sender: FDA-Public Use
  Company Number: FR-AMGEN-FRASP2015141189

PATIENT
  Age: 62 Year
  Sex: Female

DRUGS (8)
  1. LISINOPRIL/HYDROCHLOORTHIAZIDE SANDOZ [Concomitant]
     Indication: HYPERTENSION
     Dosage: 0.5 DF, 1X/DAY
     Route: 048
     Dates: start: 200302
  2. ARAVA [Suspect]
     Active Substance: LEFLUNOMIDE
     Indication: RHEUMATOID ARTHRITIS
     Dosage: 20 G, 1X/DAY
     Route: 048
     Dates: start: 200601, end: 20151209
  3. ENBREL [Suspect]
     Active Substance: ETANERCEPT
     Indication: RHEUMATOID ARTHRITIS
     Dosage: 50 MG, WEEKLY
     Route: 058
     Dates: start: 200603
  4. FOSAVANCE [Concomitant]
     Active Substance: ALENDRONATE SODIUM\CHOLECALCIFEROL
     Indication: OSTEOPOROSIS
     Dosage: UNK
     Route: 048
     Dates: start: 20060614, end: 201210
  5. TRAMADOL PARACETAMOL SANDOZ [Concomitant]
     Indication: RHEUMATOID ARTHRITIS
     Dosage: UNK
     Route: 048
     Dates: end: 2015
  6. DAFALGAN [Concomitant]
     Active Substance: ACETAMINOPHEN
     Indication: RHEUMATOID ARTHRITIS
     Dosage: UNK
     Route: 048
  7. ALLOPURINOL SANDOZ [Concomitant]
     Active Substance: ALLOPURINOL
     Indication: GOUT
     Dosage: UNK
     Route: 048
     Dates: start: 200311
  8. OMEPRAZOL SANDOZ                   /00661201/ [Concomitant]
     Indication: GASTROOESOPHAGEAL REFLUX DISEASE
     Dosage: 20 MG, 1X/DAY
     Route: 048
     Dates: start: 200302

REACTIONS (5)
  - Cholecystitis chronic [Recovered/Resolved]
  - Cholangitis acute [Recovered/Resolved with Sequelae]
  - Pancreatolithiasis [Recovered/Resolved]
  - Cholecystitis acute [Recovered/Resolved]
  - Cholelithiasis obstructive [Recovered/Resolved]

NARRATIVE: CASE EVENT DATE: 200606
